FAERS Safety Report 14834757 (Version 1)
Quarter: 2018Q2

REPORT INFORMATION
  Report Type: Spontaneous
  Country: US (occurrence: US)
  Receive Date: 20180501
  Receipt Date: 20180501
  Transmission Date: 20180711
  Serious: Yes (Other)
  Sender: FDA-Public Use
  Company Number: US-BAUSCH-BL-2018-012700

PATIENT
  Sex: Female

DRUGS (1)
  1. ELIDEL [Suspect]
     Active Substance: PIMECROLIMUS
     Indication: PRODUCT USED FOR UNKNOWN INDICATION
     Dosage: AS DIRECTED
     Route: 061
     Dates: start: 201804, end: 201804

REACTIONS (2)
  - Urinary tract infection [Recovering/Resolving]
  - Blood urine present [Recovering/Resolving]

NARRATIVE: CASE EVENT DATE: 201804
